FAERS Safety Report 6976750-X (Version None)
Quarter: 2010Q3

REPORT INFORMATION
  Report Type: 
  Country: None (occurrence: None)
  Receive Date: 20100824
  Receipt Date: 20100604
  Transmission Date: 20110219
  Serious: No
  Sender: FDA-Public Use
  Company Number: 310354

PATIENT
  Sex: Female

DRUGS (3)
  1. VICTOZA [Suspect]
     Indication: DIABETES MELLITUS
     Dosage: 0.6 MG, QD, SUBCUTANEOUS; 1.2 MG, QD, SUBCUTANEOUS
     Route: 058
     Dates: start: 20100528, end: 20100620
  2. VICTOZA [Suspect]
     Indication: DIABETES MELLITUS
     Dosage: 0.6 MG, QD, SUBCUTANEOUS; 1.2 MG, QD, SUBCUTANEOUS
     Route: 058
     Dates: start: 20100101
  3. VICTOZA [Suspect]

REACTIONS (3)
  - ASTHENIA [None]
  - BLOOD GLUCOSE INCREASED [None]
  - SOMNOLENCE [None]
